FAERS Safety Report 24139379 (Version 1)
Quarter: 2024Q3

REPORT INFORMATION
  Report Type: Spontaneous
  Country: JP (occurrence: JP)
  Receive Date: 20240726
  Receipt Date: 20240726
  Transmission Date: 20241016
  Serious: No
  Sender: Waylis
  Company Number: JP-WT-2024-03563

PATIENT
  Age: 62 Year
  Sex: Male

DRUGS (1)
  1. LUNESTA [Suspect]
     Active Substance: ESZOPICLONE
     Dosage: 3 MG
     Route: 048

REACTIONS (1)
  - Dysgeusia [Not Recovered/Not Resolved]
